FAERS Safety Report 6318781-9 (Version None)
Quarter: 2009Q3

REPORT INFORMATION
  Report Type: 
  Country: None (occurrence: None)
  Receive Date: 20090819
  Receipt Date: 20090810
  Transmission Date: 20100115
  Serious: Yes (Hospitalization)
  Sender: FDA-Public Use
  Company Number: 2009SP018785

PATIENT
  Age: 52 Year
  Sex: Male

DRUGS (6)
  1. PEG-INTRON [Suspect]
     Indication: HEPATITIS C
     Dosage: 135 MCG;QW;SC
     Route: 058
     Dates: start: 20081215
  2. RIBAVIRIN [Suspect]
     Indication: HEPATITIS C
     Dosage: QD; PO; 1200 MG;QD;PO
     Route: 047
     Dates: start: 20081215, end: 20090602
  3. RIBAVIRIN [Suspect]
     Indication: HEPATITIS C
     Dosage: QD; PO; 1200 MG;QD;PO
     Route: 047
     Dates: start: 20090603
  4. ELTROMBOPAG (ELTROMBOPAG) [Suspect]
     Indication: THROMBOCYTOPENIA
     Dosage: PO; 100 MG;QD;PO
     Route: 048
     Dates: start: 20081027, end: 20081208
  5. ELTROMBOPAG (ELTROMBOPAG) [Suspect]
     Indication: THROMBOCYTOPENIA
     Dosage: PO; 100 MG;QD;PO
     Route: 048
     Dates: start: 20081209, end: 20081215
  6. BLINDED ELTROMBOPAG (ELTROMBOPAG) [Suspect]
     Indication: THROMBOCYTOPENIA
     Dosage: 100 MG;QD;
     Dates: start: 20081216

REACTIONS (3)
  - ANAL FISSURE [None]
  - PNEUMONITIS [None]
  - SKIN INDURATION [None]
